FAERS Safety Report 24372107 (Version 1)
Quarter: 2024Q3

REPORT INFORMATION
  Report Type: Spontaneous
  Country: SE (occurrence: SE)
  Receive Date: 20240927
  Receipt Date: 20240927
  Transmission Date: 20241017
  Serious: Yes (Other)
  Sender: MYLAN
  Company Number: SE-MYLANLABS-2012S1014338

PATIENT
  Age: 7 Decade
  Sex: Female

DRUGS (1)
  1. SERTRALINE [Suspect]
     Active Substance: SERTRALINE HYDROCHLORIDE
     Indication: Depression
     Dosage: UNK, SUSPENSION OF THE MEDICINE WAS RECOMMENDED ADDITONAL DOSING INFOMATION COMMENT
     Route: 065

REACTIONS (2)
  - Colitis microscopic [Unknown]
  - Diarrhoea [Unknown]
